FAERS Safety Report 4348948-0 (Version None)
Quarter: 2004Q2

REPORT INFORMATION
  Report Type: 
  Country: None (occurrence: None)
  Receive Date: 20040423
  Receipt Date: 20040413
  Transmission Date: 20050107
  Serious: Yes (Hospitalization, Other)
  Sender: FDA-Public Use
  Company Number: HQWYE446113APR04

PATIENT
  Age: 46 Year
  Sex: Female

DRUGS (2)
  1. ADVIL [Suspect]
     Indication: INFLUENZA
     Dosage: 200 MG, 1 DF, ORAL
     Route: 048
     Dates: start: 20031227, end: 20031230
  2. TEGRETOL [Suspect]
     Indication: EPILEPSY
     Dosage: 200 MG, 0.5 DF, ORAL
     Route: 048
     Dates: start: 20031106, end: 20040110

REACTIONS (6)
  - ALANINE AMINOTRANSFERASE INCREASED [None]
  - DRUG RASH WITH EOSINOPHILIA AND SYSTEMIC SYMPTOMS [None]
  - DYSPNOEA [None]
  - EYELID OEDEMA [None]
  - LEUKOCYTOSIS [None]
  - LYMPHADENOPATHY [None]
